FAERS Safety Report 8317832-X (Version None)
Quarter: 2012Q2

REPORT INFORMATION
  Report Type: 
  Country: None (occurrence: None)
  Receive Date: 20120427
  Receipt Date: 20120425
  Transmission Date: 20120825
  Serious: Yes (Death, Hospitalization)
  Sender: FDA-Public Use
  Company Number: US-B.I. PHARMACEUTICALS,INC./RIDGEFIELD-2012-BP-03878BP

PATIENT
  Sex: Female

DRUGS (17)
  1. TRAMADOL HCL [Concomitant]
  2. NAMENDA [Concomitant]
     Route: 048
  3. ATENOLOL [Concomitant]
  4. LASIX [Concomitant]
  5. CELEBREX [Concomitant]
  6. VITAMIN D [Concomitant]
  7. FISH OIL [Concomitant]
  8. REQUIP [Concomitant]
  9. GABAPENTIN [Concomitant]
  10. CALCIUM CITRATE + D [Concomitant]
  11. COLACE [Concomitant]
  12. ARICEPT [Concomitant]
     Dosage: 10 MG
  13. ASPIRIN [Concomitant]
  14. PRADAXA [Suspect]
     Indication: ATRIAL FIBRILLATION
     Dosage: 300 MG
     Route: 048
     Dates: start: 20110901, end: 20120201
  15. PRAVASTATIN [Concomitant]
     Route: 048
  16. FORTEO [Concomitant]
  17. PAXIL [Concomitant]

REACTIONS (1)
  - HAEMORRHAGE INTRACRANIAL [None]
